FAERS Safety Report 18454147 (Version 2)
Quarter: 2020Q4

REPORT INFORMATION
  Report Type: Spontaneous
  Country: JP (occurrence: JP)
  Receive Date: 20201102
  Receipt Date: 20201211
  Transmission Date: 20210114
  Serious: Yes (Hospitalization)
  Sender: FDA-Public Use
  Company Number: JP-JNJFOC-20201050145

PATIENT
  Age: 80 Year
  Sex: Male
  Weight: 44.9 kg

DRUGS (9)
  1. HUMULIN R [Concomitant]
     Active Substance: INSULIN HUMAN
     Dosage: DOSE UNKNOWN
     Route: 058
  2. ZYTIGA [Suspect]
     Active Substance: ABIRATERONE ACETATE
     Indication: PROSTATE CANCER
     Dosage: UPON AWAKENING
     Route: 048
     Dates: start: 20200901, end: 20201026
  3. PREDONINE [Concomitant]
     Active Substance: PREDNISOLONE
     Indication: PROSTATE CANCER
     Dosage: AFTER BREAKFAST
     Route: 048
     Dates: start: 20200901, end: 20201109
  4. TAKEPRON [Concomitant]
     Active Substance: LANSOPRAZOLE
     Dosage: AFTER BREAKFAST
     Route: 048
     Dates: start: 20201025, end: 20201109
  5. BONALON [Concomitant]
     Active Substance: ALENDRONATE SODIUM
     Dosage: UPON AWAKENING
     Route: 048
     Dates: start: 20201112, end: 20201112
  6. PREDONINE [Concomitant]
     Active Substance: PREDNISOLONE
     Indication: PROSTATE CANCER
     Dosage: AFTER BREAKFAST
     Route: 048
     Dates: start: 20201111
  7. LANSOPRAZOLE OD [Concomitant]
     Active Substance: LANSOPRAZOLE
     Dosage: AFTER BREAKFAST
     Route: 048
     Dates: start: 20201106
  8. BONALON [Concomitant]
     Active Substance: ALENDRONATE SODIUM
     Dosage: UPON AWAKENING
     Route: 048
     Dates: start: 20201106, end: 20201106
  9. BONALON [Concomitant]
     Active Substance: ALENDRONATE SODIUM
     Dosage: UPON AWAKENING
     Route: 048
     Dates: start: 20201103, end: 20201103

REACTIONS (1)
  - Interstitial lung disease [Recovering/Resolving]

NARRATIVE: CASE EVENT DATE: 20201024
